FAERS Safety Report 25110086 (Version 6)
Quarter: 2025Q3

REPORT INFORMATION
  Report Type: Spontaneous
  Country: US (occurrence: US)
  Receive Date: 20250324
  Receipt Date: 20250709
  Transmission Date: 20251020
  Serious: No
  Sender: ROCHE
  Company Number: US-ROCHE-10000236896

PATIENT
  Sex: Male
  Weight: 78.93 kg

DRUGS (1)
  1. HEMLIBRA [Suspect]
     Active Substance: EMICIZUMAB-KXWH
     Indication: Factor VIII deficiency
     Dosage: STRENGTH: 60MG/0.4ML
     Route: 058
     Dates: start: 202406

REACTIONS (1)
  - Pain [Unknown]
